FAERS Safety Report 5355456-7 (Version None)
Quarter: 2007Q2

REPORT INFORMATION
  Report Type: 
  Country: None (occurrence: None)
  Receive Date: 20070530
  Receipt Date: 20070103
  Transmission Date: 20071010
  Serious: Yes (Hospitalization)
  Sender: FDA-Public Use
  Company Number: US200609002151

PATIENT
  Age: 38 Year
  Sex: Male
  Weight: 113.4 kg

DRUGS (8)
  1. ZYPREXA [Suspect]
     Dosage: SEE IMAGE
     Dates: start: 20030101, end: 20030101
  2. ZYPREXA [Suspect]
     Dosage: SEE IMAGE
     Dates: start: 20030101, end: 20030101
  3. THIOTHIXENE (THIOTHIXENE) [Concomitant]
  4. CLOZAPINE [Concomitant]
  5. HALOPERIDOL [Concomitant]
  6. VENLAFAXINE HCL [Concomitant]
  7. MIRTAZAPINE [Concomitant]
  8. SERTRALINE [Concomitant]

REACTIONS (3)
  - DIABETES MELLITUS [None]
  - METABOLIC DISORDER [None]
  - PRESCRIBED OVERDOSE [None]
